FAERS Safety Report 17219721 (Version 4)
Quarter: 2020Q1

REPORT INFORMATION
  Report Type: Report from Study
  Country: EG (occurrence: EG)
  Receive Date: 20191231
  Receipt Date: 20200302
  Transmission Date: 20200409
  Serious: Yes (Hospitalization, Other)
  Sender: FDA-Public Use
  Company Number: NVSC2019EG080529

PATIENT
  Sex: Female

DRUGS (4)
  1. TASIGNA [Suspect]
     Active Substance: NILOTINIB
     Indication: CHRONIC MYELOID LEUKAEMIA
     Dosage: 2 CAP (400 MG), QD
     Route: 065
     Dates: start: 2017
  2. SPRYCEL [Suspect]
     Active Substance: DASATINIB
     Indication: PRODUCT USED FOR UNKNOWN INDICATION
     Dosage: UNK
     Route: 065
  3. REVOLADE [Suspect]
     Active Substance: ELTROMBOPAG
     Indication: THROMBOCYTOPENIA
     Dosage: 50 MG, QD
     Route: 065
  4. GLIVEC [Suspect]
     Active Substance: IMATINIB MESYLATE
     Indication: CHRONIC MYELOID LEUKAEMIA
     Dosage: 400 MG, QD
     Route: 048
     Dates: start: 2014, end: 2015

REACTIONS (13)
  - Cerebral haemorrhage [Recovered/Resolved]
  - Polymerase chain reaction positive [Recovered/Resolved]
  - Oedema peripheral [Recovering/Resolving]
  - Thrombocytopenia [Not Recovered/Not Resolved]
  - Autoantibody positive [Unknown]
  - White blood cell count decreased [Not Recovered/Not Resolved]
  - Headache [Recovering/Resolving]
  - Therapeutic response decreased [Unknown]
  - Diabetes mellitus [Not Recovered/Not Resolved]
  - Anaemia [Not Recovered/Not Resolved]
  - Platelet count decreased [Not Recovered/Not Resolved]
  - Leukocytosis [Recovered/Resolved]
  - Fatigue [Recovering/Resolving]

NARRATIVE: CASE EVENT DATE: 2018
